FAERS Safety Report 16430790 (Version 1)
Quarter: 2019Q3

REPORT INFORMATION
  Report Type: Spontaneous
  Country: US (occurrence: US)
  Receive Date: 20190613
  Receipt Date: 20190613
  Transmission Date: 20191004
  Serious: No
  Sender: FDA-Public Use
  Company Number: None

PATIENT
  Age: 52 Year
  Sex: Female

DRUGS (16)
  1. VITAMIN B12 [Concomitant]
     Active Substance: CYANOCOBALAMIN
  2. CALCIUMD [Concomitant]
  3. ATORVASTATIN [Concomitant]
     Active Substance: ATORVASTATIN
  4. OXYCODONE [Concomitant]
     Active Substance: OXYCODONE
  5. ASPIRIN. [Concomitant]
     Active Substance: ASPIRIN
  6. FOLIC ACID. [Concomitant]
     Active Substance: FOLIC ACID
  7. METFORMIN [Concomitant]
     Active Substance: METFORMIN HYDROCHLORIDE
  8. ENBREL [Suspect]
     Active Substance: ETANERCEPT
     Indication: RHEUMATOID ARTHRITIS
     Dosage: ?          OTHER FREQUENCY:EVERY WEEK;?
     Route: 057
     Dates: start: 20180403
  9. HYDROXYCHLOR [Concomitant]
     Active Substance: HYDROXYCHLOROQUINE
  10. PREDNISONE. [Concomitant]
     Active Substance: PREDNISONE
  11. COMBIPATCH. [Concomitant]
  12. CYCLOBENZAPR [Concomitant]
     Active Substance: CYCLOBENZAPRINE
  13. PAROXETINE. [Concomitant]
     Active Substance: PAROXETINE
  14. OMEPRAZOLE. [Concomitant]
     Active Substance: OMEPRAZOLE
  15. LEFLUNOMIDE. [Concomitant]
     Active Substance: LEFLUNOMIDE
  16. PAROXETINE. [Concomitant]
     Active Substance: PAROXETINE

REACTIONS (2)
  - Post procedural complication [None]
  - Rheumatoid arthritis [None]

NARRATIVE: CASE EVENT DATE: 20190501
